FAERS Safety Report 8623302-1 (Version None)
Quarter: 2012Q3

REPORT INFORMATION
  Report Type: 
  Country: None (occurrence: None)
  Receive Date: 20120827
  Receipt Date: 20120816
  Transmission Date: 20120928
  Serious: Yes (Life-Threatening, Other)
  Sender: FDA-Public Use
  Company Number: GB-ELI_LILLY_AND_COMPANY-GB201208004948

PATIENT
  Age: 69 Year
  Sex: Male

DRUGS (14)
  1. ALLOPURINOL [Concomitant]
     Dosage: 300 MG, UNK
     Dates: start: 20111231
  2. ATORVASTATIN [Concomitant]
     Dosage: 80 MG, QD
     Dates: start: 20120101
  3. RANITIDINE [Concomitant]
     Dosage: 150 MG, BID
     Dates: start: 20120716
  4. OLANZAPINE [Suspect]
     Indication: AGITATION
     Dosage: 5 MG, BID
     Route: 048
     Dates: start: 20120720
  5. AMLODIPINE [Concomitant]
     Dosage: 5 MG, QD
     Dates: start: 20120101
  6. ATENOLOL [Concomitant]
     Dosage: 25 MG, QD
     Dates: start: 20120101
  7. METFORMIN HCL [Concomitant]
     Dosage: 1 G, BID
     Dates: start: 20120101
  8. OLANZAPINE [Suspect]
     Dosage: 10 MG, BID
     Route: 048
  9. FUROSEMIDE [Concomitant]
     Dosage: UNK
     Dates: start: 20120727
  10. RAMIPRIL [Concomitant]
     Dosage: 10 MG, BID
     Dates: start: 20120101
  11. OLANZAPINE [Suspect]
     Dosage: 1 DF, UNKNOWN
  12. FLUOXETINE HCL [Concomitant]
     Dosage: 20 MG, QD
     Dates: start: 20120727
  13. ASPIRIN [Concomitant]
     Dosage: 75 MG, QD
     Dates: start: 20120101
  14. TAMSULOSIN HCL [Concomitant]
     Dosage: 400 UG, QD
     Route: 048
     Dates: start: 20120101

REACTIONS (3)
  - ACUTE MYOCARDIAL INFARCTION [None]
  - OFF LABEL USE [None]
  - VENTRICULAR TACHYCARDIA [None]
